FAERS Safety Report 14568716 (Version 2)
Quarter: 2018Q1

REPORT INFORMATION
  Report Type: Spontaneous
  Country: US (occurrence: US)
  Receive Date: 20180223
  Receipt Date: 20180312
  Transmission Date: 20180509
  Serious: Yes (Hospitalization)
  Sender: FDA-Public Use
  Company Number: US-STRONGBRIDGE BIOPHARMA-2018-STR-000027

PATIENT

DRUGS (1)
  1. KEVEYIS [Suspect]
     Active Substance: DICHLORPHENAMIDE
     Indication: PRODUCT USED FOR UNKNOWN INDICATION
     Dosage: UNK
     Route: 048
     Dates: start: 20170517

REACTIONS (6)
  - Muscular weakness [Recovered/Resolved]
  - Hypokalaemia [Recovered/Resolved]
  - Paraesthesia [Recovered/Resolved]
  - Nephrolithiasis [Recovered/Resolved]
  - Disease recurrence [Recovered/Resolved]
  - Pharyngitis streptococcal [Recovered/Resolved]

NARRATIVE: CASE EVENT DATE: 20180127
